FAERS Safety Report 25017428 (Version 3)
Quarter: 2025Q3

REPORT INFORMATION
  Report Type: Report from Study
  Country: CA (occurrence: CA)
  Receive Date: 20250227
  Receipt Date: 20250710
  Transmission Date: 20251021
  Serious: Yes (Other)
  Sender: SANDOZ
  Company Number: CA-SANDOZ-SDZ2024CA045610

PATIENT
  Sex: Female

DRUGS (2)
  1. HYRIMOZ [Suspect]
     Active Substance: ADALIMUMAB-ADAZ
     Indication: Rheumatoid arthritis
     Dosage: 40 MG, Q2W
     Route: 058
     Dates: start: 20220514
  2. HYRIMOZ [Suspect]
     Active Substance: ADALIMUMAB-ADAZ
     Dosage: 40 MG, BIW
     Route: 058
     Dates: start: 20220514

REACTIONS (12)
  - Thoracic vertebral fracture [Unknown]
  - Spinal fracture [Unknown]
  - Fall [Unknown]
  - Osteoporosis [Unknown]
  - General physical health deterioration [Unknown]
  - Arthralgia [Unknown]
  - Cough [Unknown]
  - Nasopharyngitis [Unknown]
  - Sinusitis [Recovered/Resolved]
  - Pain in extremity [Unknown]
  - Back pain [Unknown]
  - Therapeutic product effect decreased [Unknown]
